FAERS Safety Report 6093815-8 (Version None)
Quarter: 2009Q1

REPORT INFORMATION
  Report Type: 
  Country: None (occurrence: None)
  Receive Date: 20090223
  Receipt Date: 20090205
  Transmission Date: 20090719
  Serious: Yes (Hospitalization)
  Sender: FDA-Public Use
  Company Number: 8042850

PATIENT
  Age: 76 Year
  Sex: Male

DRUGS (1)
  1. KEPPRA [Suspect]
     Indication: EPILEPSY
     Dosage: 750 MG PO
     Route: 048
     Dates: start: 20090123, end: 20090209

REACTIONS (1)
  - LEUKOPENIA [None]
